FAERS Safety Report 23852506 (Version 1)
Quarter: 2024Q2

REPORT INFORMATION
  Report Type: Spontaneous
  Country: FR (occurrence: FR)
  Receive Date: 20240514
  Receipt Date: 20240514
  Transmission Date: 20240716
  Serious: Yes (Other)
  Sender: FDA-Public Use
  Company Number: None

PATIENT
  Age: 77 Year
  Sex: Female
  Weight: 66 kg

DRUGS (3)
  1. LETROZOLE [Suspect]
     Active Substance: LETROZOLE
     Indication: Cancer hormonal therapy
     Dates: start: 202106
  2. PALBOCICLIB [Suspect]
     Active Substance: PALBOCICLIB
     Indication: Cancer hormonal therapy
     Dates: start: 202106, end: 202106
  3. PALBOCICLIB [Suspect]
     Active Substance: PALBOCICLIB
     Indication: Cancer hormonal therapy
     Dates: start: 202205

REACTIONS (1)
  - Dermatitis bullous [Recovering/Resolving]

NARRATIVE: CASE EVENT DATE: 20230908
